FAERS Safety Report 4340696-6 (Version None)
Quarter: 2004Q2

REPORT INFORMATION
  Report Type: 
  Country: None (occurrence: None)
  Receive Date: 20040413
  Receipt Date: 20040331
  Transmission Date: 20050107
  Serious: Yes (Other)
  Sender: FDA-Public Use
  Company Number: HQWYE334302APR04

PATIENT
  Age: 44 Year
  Sex: Male
  Weight: 80 kg

DRUGS (12)
  1. MYLOTARG [Suspect]
     Indication: ACUTE MYELOID LEUKAEMIA
     Dosage: 15 MG 1X PER 14 DAY, INTRAVENOUS
     Route: 042
     Dates: start: 20040330, end: 20040330
  2. RIBAVIRIN [Concomitant]
  3. CHLORHEXIDINE (CHLORHEXIDINE) [Concomitant]
  4. CLOTRIMAZOLE (CLOTRIMAZOLE) [Concomitant]
  5. PEPCID [Concomitant]
  6. ACYCLOVIR [Concomitant]
  7. ALLOPURINOL [Concomitant]
  8. BENADRYL [Concomitant]
  9. FLUCONAZOLE [Concomitant]
  10. IMIPENEM (IMIPENEM) [Concomitant]
  11. SOLU-MEDROL (METHYLOREDNISOLONE SODIUM SUCCINATE) [Concomitant]
  12. TYLENOL [Concomitant]

REACTIONS (5)
  - CHILLS [None]
  - HYPERTENSION [None]
  - PYREXIA [None]
  - RESPIRATORY DISTRESS [None]
  - TACHYCARDIA [None]
